FAERS Safety Report 23276552 (Version 3)
Quarter: 2024Q1

REPORT INFORMATION
  Report Type: Spontaneous
  Country: US (occurrence: US)
  Receive Date: 20231208
  Receipt Date: 20240214
  Transmission Date: 20240410
  Serious: Yes (Other)
  Sender: FDA-Public Use
  Company Number: US-REGENERON PHARMACEUTICALS, INC.-2023-148275

PATIENT
  Sex: Male

DRUGS (3)
  1. EYLEA [Suspect]
     Active Substance: AFLIBERCEPT
     Indication: Neovascular age-related macular degeneration
     Dosage: 2MG, MONTHLY, BOTH EYES (FORMULATION: UNKNOWN)
     Dates: start: 201806
  2. EYLEA [Suspect]
     Active Substance: AFLIBERCEPT
     Dosage: 2MG, EVERY 2 MONTHS, BOTH EYES (FORMULATION: UNKNOWN)
  3. EYLEA [Suspect]
     Active Substance: AFLIBERCEPT
     Dosage: 2MG, EVERY 3 MONTHS, BOTH EYES (FORMULATION: UNKNOWN)
     Dates: start: 2022

REACTIONS (3)
  - Neovascular age-related macular degeneration [Unknown]
  - Condition aggravated [Unknown]
  - Therapeutic response decreased [Unknown]
